FAERS Safety Report 20897596 (Version 2)
Quarter: 2022Q2

REPORT INFORMATION
  Report Type: Spontaneous
  Country: TH (occurrence: TH)
  Receive Date: 20220531
  Receipt Date: 20220608
  Transmission Date: 20220721
  Serious: Yes (Death, Hospitalization)
  Sender: FDA-Public Use
  Company Number: TH-002147023-NVSC2022TH113862

PATIENT

DRUGS (1)
  1. RUXOLITINIB [Suspect]
     Active Substance: RUXOLITINIB
     Indication: Primary myelofibrosis
     Dosage: 20 MG, BID
     Route: 065
     Dates: start: 202202

REACTIONS (4)
  - Pyrexia [Unknown]
  - Burkholderia pseudomallei infection [Unknown]
  - Infection [Fatal]
  - Pallor [Unknown]
